FAERS Safety Report 23152718 (Version 1)
Quarter: 2023Q4

REPORT INFORMATION
  Report Type: Spontaneous
  Country: IN (occurrence: IN)
  Receive Date: 20231107
  Receipt Date: 20231107
  Transmission Date: 20240109
  Serious: Yes (Death, Hospitalization)
  Sender: FDA-Public Use
  Company Number: IN-STERISCIENCE B.V.-2023-ST-002121

PATIENT
  Sex: Female

DRUGS (8)
  1. VANCOMYCIN [Suspect]
     Active Substance: VANCOMYCIN
     Indication: Antibiotic therapy
     Dosage: ADMINISTERED AS PER BODY WEIGHT AND GESTATIONAL AGE
     Route: 065
  2. MEROPENEM [Suspect]
     Active Substance: MEROPENEM
     Indication: Antibiotic therapy
     Dosage: ADMINISTERED AS PER BODY WEIGHT AND GESTATIONAL AGE
     Route: 065
  3. MIDAZOLAM [Suspect]
     Active Substance: MIDAZOLAM
     Indication: Seizure
     Dosage: INFUSION
     Route: 042
  4. COLISTIN [Suspect]
     Active Substance: COLISTIN
     Indication: Antibiotic therapy
     Dosage: ADMINISTERED AS PER BODY WEIGHT AND GESTATIONAL AGE
     Route: 065
  5. AMPHOTERICIN B [Concomitant]
     Active Substance: AMPHOTERICIN B
     Indication: Rhinocerebral mucormycosis
     Dosage: 5 MILLIGRAM/KILOGRAM, QD, LIPOSOMAL
     Route: 065
  6. PHENOBARBITAL [Concomitant]
     Active Substance: PHENOBARBITAL
     Indication: Seizure
     Dosage: UNK
     Route: 065
  7. PHENYTOIN [Concomitant]
     Active Substance: PHENYTOIN
     Indication: Seizure
     Dosage: UNK
     Route: 065
  8. LEVETIRACETAM [Concomitant]
     Active Substance: LEVETIRACETAM
     Indication: Seizure
     Dosage: UNK
     Route: 065

REACTIONS (3)
  - Rhinocerebral mucormycosis [Fatal]
  - Condition aggravated [Fatal]
  - Off label use [Unknown]
